FAERS Safety Report 20913388 (Version 5)
Quarter: 2022Q4

REPORT INFORMATION
  Report Type: Report from Study
  Country: US (occurrence: US)
  Receive Date: 20220603
  Receipt Date: 20221028
  Transmission Date: 20230113
  Serious: No
  Sender: FDA-Public Use
  Company Number: US-NOVARTISTESTPH-NVSC2022US124473

PATIENT
  Age: 57 Year
  Sex: Male

DRUGS (3)
  1. COSENTYX [Suspect]
     Active Substance: SECUKINUMAB
     Indication: Product used for unknown indication
     Dosage: UNK
     Route: 065
  2. COSENTYX [Suspect]
     Active Substance: SECUKINUMAB
     Dosage: 150 MG, QMO
     Route: 030
     Dates: start: 20210201, end: 20210819
  3. COSENTYX [Suspect]
     Active Substance: SECUKINUMAB
     Dosage: UNK (SAMPLE DOSE)
     Route: 065
     Dates: start: 20221011

REACTIONS (2)
  - Accident [Unknown]
  - Fall [Recovering/Resolving]

NARRATIVE: CASE EVENT DATE: 20210819
